FAERS Safety Report 10862978 (Version 3)
Quarter: 2015Q1

REPORT INFORMATION
  Report Type: Spontaneous
  Country: FR (occurrence: None)
  Receive Date: 20150219
  Receipt Date: 20150316
  Transmission Date: 20150721
  Serious: Yes (Life-Threatening, Hospitalization, Other)
  Sender: FDA-Public Use
  Company Number: ADR-2015-00338

PATIENT
  Age: 53 Year
  Sex: Male

DRUGS (11)
  1. MAG2TABLET [Suspect]
     Active Substance: MAGNESIUM PIDOLATE
     Dosage: 1 TABLET IN THE MORNING AND IN THE EVENING
     Dates: end: 20140623
  2. ATARAX [Suspect]
     Active Substance: HYDROXYZINE\HYDROXYZINE HYDROCHLORIDE
     Indication: INSOMNIA
     Route: 048
     Dates: start: 20140617
  3. NICOTINE. [Suspect]
     Active Substance: NICOTINE
     Indication: SMOKING CESSATION THERAPY
     Dates: start: 20140619
  4. NICOBION [Suspect]
     Active Substance: NIACINAMIDE
     Indication: ALCOHOLISM
     Dosage: DOSE OF 1 TABLET AT MIDDAY SINCE 17 JUN 2014 FOR ALCOHOLISM
     Route: 048
     Dates: start: 20140617
  5. ORAL BACLOFEN [Suspect]
     Active Substance: BACLOFEN
     Indication: ALCOHOLISM
     Dates: start: 20140327, end: 20140624
  6. SERESTA [Suspect]
     Active Substance: OXAZEPAM
     Dosage: 0.5 THREE TIMES A DAY THEN 0.5 TWO TIMES IN THE MORNING AND IN THE EVENING AND 0.5 IN THE EVENING
     Dates: start: 20140617
  7. RIVOTRIL [Suspect]
     Active Substance: CLONAZEPAM
     Route: 030
  8. NICOPATCH [Suspect]
     Active Substance: NICOTINE
     Indication: SMOKING CESSATION THERAPY
     Dosage: 2 PATCHES PER DAY (DRUG OVERDOSE) FROM 19 JUN 2014
     Dates: start: 20140619
  9. VITAMIN B1-B6 BAYER [Suspect]
     Active Substance: PYRIDOXINE HYDROCHLORIDE\THIAMINE HYDROCHLORIDE
     Dosage: 2 TABLETS IN THE MORNING AND IN THE EVENING
  10. LYSANXIA [Suspect]
     Active Substance: PRAZEPAM
     Dosage: 1 TABLET IN THE MORNING
  11. NICOTINE (NCH) (NICOTINE) [Suspect]
     Active Substance: NICOTINE
     Indication: SMOKING CESSATION THERAPY
     Route: 048
     Dates: start: 20140619

REACTIONS (12)
  - Prescribed overdose [None]
  - Fall [None]
  - Tongue biting [None]
  - Rash generalised [None]
  - Gamma-glutamyltransferase increased [None]
  - Cerebellar syndrome [None]
  - Poisoning deliberate [None]
  - Seizure [None]
  - Urinary incontinence [None]
  - Rash erythematous [None]
  - Aspartate aminotransferase increased [None]
  - Alanine aminotransferase increased [None]

NARRATIVE: CASE EVENT DATE: 20140619
